FAERS Safety Report 4834699-2 (Version None)
Quarter: 2005Q4

REPORT INFORMATION
  Report Type: 
  Country: None (occurrence: None)
  Receive Date: 20051122
  Receipt Date: 20051114
  Transmission Date: 20060501
  Serious: Yes (Hospitalization)
  Sender: FDA-Public Use
  Company Number: RRS-04-013

PATIENT
  Age: 72 Year
  Sex: Female
  Weight: 49.5 kg

DRUGS (10)
  1. LAMICTAL [Suspect]
     Dosage: 12.5MG PER DAY
     Route: 048
     Dates: start: 20050606
  2. SEROQUEL [Suspect]
     Indication: DEPRESSIVE DELUSION
     Route: 048
     Dates: start: 20050417, end: 20050610
  3. MIRTAZAPINE [Suspect]
     Route: 048
     Dates: start: 20050511
  4. CYMBALTA [Suspect]
     Route: 048
     Dates: start: 20050511
  5. ZOPICLONE [Concomitant]
     Dosage: 7.5MG UNKNOWN
     Route: 048
     Dates: start: 20050511, end: 20050612
  6. MESTINON [Concomitant]
     Dosage: 270MG PER DAY
     Route: 048
  7. DIGIMERCK [Concomitant]
     Dosage: .07MG PER DAY
     Route: 048
  8. ATACAND [Concomitant]
     Dosage: 16MG PER DAY
     Route: 048
  9. PREDNISOLONE [Concomitant]
     Dosage: 4MG PER DAY
     Route: 048
  10. IDEOS [Concomitant]
     Dosage: 3500MG PER DAY
     Route: 048

REACTIONS (2)
  - DRUG INTERACTION [None]
  - HEPATIC ENZYME INCREASED [None]
